FAERS Safety Report 24083156 (Version 4)
Quarter: 2025Q2

REPORT INFORMATION
  Report Type: Report from Study
  Country: CA (occurrence: CA)
  Receive Date: 20240712
  Receipt Date: 20250623
  Transmission Date: 20250717
  Serious: Yes (Other)
  Sender: CSL BEHRING
  Company Number: CA-BEH-2024175332

PATIENT
  Age: 61 Year
  Sex: Female
  Weight: 60.8 kg

DRUGS (2)
  1. HIZENTRA [Suspect]
     Active Substance: HUMAN IMMUNOGLOBULIN G
     Indication: Secondary immunodeficiency
     Dosage: 7 G, QW
     Route: 065
     Dates: start: 20201116
  2. HIZENTRA [Suspect]
     Active Substance: HUMAN IMMUNOGLOBULIN G
     Dosage: 7 UNK
     Route: 058
     Dates: start: 20201116

REACTIONS (4)
  - Infusion site pain [Unknown]
  - Dermatitis contact [Unknown]
  - Infusion site infection [Unknown]
  - Abdominal distension [Unknown]
